FAERS Safety Report 4302464-0 (Version None)
Quarter: 2004Q1

REPORT INFORMATION
  Report Type: 
  Country: None (occurrence: None)
  Receive Date: 20040220
  Receipt Date: 20040205
  Transmission Date: 20041129
  Serious: Yes (Hospitalization)
  Sender: FDA-Public Use
  Company Number: 7421

PATIENT
  Age: 47 Year
  Sex: Male

DRUGS (2)
  1. LEUCOVORIN [Suspect]
     Indication: RECTAL CANCER
     Dosage: 75 MG, PO
     Route: 048
     Dates: start: 20040114, end: 20040118
  2. TEGAFUR URACIL [Suspect]
     Indication: RECTAL CANCER
     Dosage: 500 MG
     Dates: start: 20040114, end: 20040118

REACTIONS (4)
  - ANOREXIA [None]
  - DIARRHOEA [None]
  - PYREXIA [None]
  - VOMITING [None]
